FAERS Safety Report 5633621-9 (Version None)
Quarter: 2008Q1

REPORT INFORMATION
  Report Type: 
  Country: None (occurrence: None)
  Receive Date: 20080221
  Receipt Date: 20080213
  Transmission Date: 20080703
  Serious: Yes (Hospitalization)
  Sender: FDA-Public Use
  Company Number: JP-ASTRAZENECA-2008AP00760

PATIENT
  Age: 74 Year
  Sex: Female

DRUGS (4)
  1. CRESTOR [Suspect]
     Indication: HYPERCHOLESTEROLAEMIA
     Route: 048
     Dates: start: 20070927, end: 20080124
  2. BONALON [Suspect]
     Route: 048
     Dates: end: 20080125
  3. ALFAROL [Suspect]
     Route: 048
     Dates: end: 20080125
  4. NORVASC [Concomitant]
     Route: 048

REACTIONS (2)
  - ERYTHEMA [None]
  - RASH [None]
